FAERS Safety Report 10207457 (Version 1)
Quarter: 2014Q2

REPORT INFORMATION
  Report Type: Spontaneous
  Country: US (occurrence: None)
  Receive Date: 20140527
  Receipt Date: 20140527
  Transmission Date: 20141212
  Serious: Yes (Hospitalization)
  Sender: FDA-Public Use
  Company Number: None

PATIENT
  Age: 69 Year
  Sex: Female

DRUGS (3)
  1. MACROBID [Suspect]
     Dates: start: 20110607, end: 20110616
  2. INSULIN [Concomitant]
  3. PRN CALCIUM CARBONATE [Concomitant]

REACTIONS (17)
  - Liver injury [None]
  - Decreased appetite [None]
  - Nausea [None]
  - Vomiting [None]
  - Abdominal pain [None]
  - Jaundice [None]
  - Aspartate aminotransferase increased [None]
  - Alanine aminotransferase increased [None]
  - Blood alkaline phosphatase increased [None]
  - Blood bilirubin increased [None]
  - Weight decreased [None]
  - Blood pressure increased [None]
  - Cholelithiasis [None]
  - Gallbladder polyp [None]
  - Haemangioma of spleen [None]
  - Diverticulum intestinal [None]
  - Nephrolithiasis [None]
